FAERS Safety Report 18916175 (Version 1)
Quarter: 2021Q1

REPORT INFORMATION
  Report Type: Spontaneous
  Country: US (occurrence: US)
  Receive Date: 20210218
  Receipt Date: 20210218
  Transmission Date: 20210420
  Serious: No
  Sender: FDA-Public Use
  Company Number: US-JNJFOC-20210230462

PATIENT
  Sex: Female

DRUGS (1)
  1. ERDAFITINIB. [Suspect]
     Active Substance: ERDAFITINIB
     Indication: TRANSITIONAL CELL CARCINOMA
     Dosage: ABOUT 3WEEKS
     Route: 048
     Dates: start: 2021

REACTIONS (4)
  - Diarrhoea [Unknown]
  - Blood uric acid abnormal [Unknown]
  - Dehydration [Unknown]
  - Blood phosphorus abnormal [Unknown]

NARRATIVE: CASE EVENT DATE: 2021
